FAERS Safety Report 13396019 (Version 1)
Quarter: 2017Q2

REPORT INFORMATION
  Report Type: Spontaneous
  Country: US (occurrence: US)
  Receive Date: 20170403
  Receipt Date: 20170403
  Transmission Date: 20170830
  Serious: No
  Sender: FDA-Public Use
  Company Number: None

PATIENT
  Age: 78 Year
  Sex: Female
  Weight: 52.2 kg

DRUGS (4)
  1. LEVOTHYROXINE. [Concomitant]
     Active Substance: LEVOTHYROXINE
  2. LISINIPRIL [Concomitant]
  3. ATOROVASTIN [Concomitant]
  4. CREON [Suspect]
     Active Substance: PANCRELIPASE AMYLASE\PANCRELIPASE LIPASE\PANCRELIPASE PROTEASE
     Indication: PRODUCT USED FOR UNKNOWN INDICATION
     Dosage: OTHER STRENGTH:UNITS;QUANTITY:1 CAPSULE(S);?
     Route: 048

REACTIONS (3)
  - Lethargy [None]
  - Eating disorder [None]
  - Abdominal discomfort [None]

NARRATIVE: CASE EVENT DATE: 20170209
